FAERS Safety Report 25273517 (Version 1)
Quarter: 2025Q2

REPORT INFORMATION
  Report Type: Spontaneous
  Country: US (occurrence: US)
  Receive Date: 20250506
  Receipt Date: 20250506
  Transmission Date: 20250717
  Serious: No
  Sender: ELI LILLY AND COMPANY
  Company Number: US-ELI_LILLY_AND_COMPANY-US202504024837

PATIENT
  Age: 66 Year
  Sex: Female

DRUGS (8)
  1. MOUNJARO [Suspect]
     Active Substance: TIRZEPATIDE
     Indication: Product used for unknown indication
     Route: 058
  2. MOUNJARO [Suspect]
     Active Substance: TIRZEPATIDE
     Indication: Product used for unknown indication
     Route: 058
  3. MOUNJARO [Suspect]
     Active Substance: TIRZEPATIDE
     Indication: Product used for unknown indication
     Route: 058
  4. MOUNJARO [Suspect]
     Active Substance: TIRZEPATIDE
     Indication: Product used for unknown indication
     Route: 058
  5. MOUNJARO [Suspect]
     Active Substance: TIRZEPATIDE
     Route: 058
     Dates: start: 20250421
  6. MOUNJARO [Suspect]
     Active Substance: TIRZEPATIDE
     Route: 058
     Dates: start: 20250421
  7. MOUNJARO [Suspect]
     Active Substance: TIRZEPATIDE
     Route: 058
     Dates: start: 20250421
  8. MOUNJARO [Suspect]
     Active Substance: TIRZEPATIDE
     Route: 058
     Dates: start: 20250421

REACTIONS (4)
  - Constipation [Unknown]
  - Vomiting [Unknown]
  - Diarrhoea [Unknown]
  - Abdominal pain [Unknown]

NARRATIVE: CASE EVENT DATE: 20250426
